FAERS Safety Report 5062917-7 (Version None)
Quarter: 2006Q3

REPORT INFORMATION
  Report Type: 
  Country: None (occurrence: None)
  Receive Date: 20060724
  Receipt Date: 20060713
  Transmission Date: 20061208
  Serious: Yes (Other)
  Sender: FDA-Public Use
  Company Number: 2006088315

PATIENT
  Age: 63 Year
  Sex: Female

DRUGS (4)
  1. TAHOR (ATORVASTATIN) [Suspect]
     Indication: HYPERCHOLESTEROLAEMIA
     Dosage: 10 MG
     Dates: start: 20050101
  2. BISOPROLOL FUMARATE [Concomitant]
  3. LEVOTHYROXINE SODIUM [Concomitant]
  4. ATHYMIL (MIANSERIN HYDROCHLORIDE) [Concomitant]

REACTIONS (3)
  - MUSCULOSKELETAL STIFFNESS [None]
  - NEUROPATHY PERIPHERAL [None]
  - PERIPHERAL NERVE INJURY [None]
